FAERS Safety Report 22010150 (Version 1)
Quarter: 2023Q1

REPORT INFORMATION
  Report Type: Report from Study
  Country: IT (occurrence: IT)
  Receive Date: 20230220
  Receipt Date: 20230220
  Transmission Date: 20230418
  Serious: Yes (Hospitalization, Other)
  Sender: FDA-Public Use
  Company Number: None

PATIENT
  Age: 10 Year
  Sex: Male
  Weight: 45 kg

DRUGS (6)
  1. ETOPOSIDE [Suspect]
     Active Substance: ETOPOSIDE
     Indication: Burkitt^s lymphoma
     Dosage: 130 MILLIGRAM DAILY; 130 MG/DAY
     Dates: start: 20221225, end: 20221226
  2. VINCRISTINE [Suspect]
     Active Substance: VINCRISTINE
     Indication: Burkitt^s lymphoma
     Dosage: 2 MILLIGRAM DAILY; 2 MG/DAY , VINCRISTINA TEVA ITALIA
     Route: 065
     Dates: start: 20221222, end: 20221222
  3. CYTARABINE [Suspect]
     Active Substance: CYTARABINE
     Indication: Burkitt^s lymphoma
     Dosage: 200 MG/DAY ON 12/25, 200 MG X 2 VV/DAY ON 26/12,200 MG/DAY ON 12/27/22
     Dates: start: 20221225, end: 20221227
  4. METHOTREXATE (METHOTREXATE SODIUM) [Suspect]
     Active Substance: METHOTREXATE SODIUM
     Indication: Burkitt^s lymphoma
     Dosage: 690 MG/DAY INTRAVENOUS INFUSION 30 MIN. ON 12/22/22, 6200 MG/DAY CONTINUOUS INFUSION 23.5 HOURS ON 1
     Route: 042
     Dates: start: 20221222, end: 20221222
  5. RITUXIMAB [Suspect]
     Active Substance: RITUXIMAB
     Indication: Burkitt^s lymphoma
     Dosage: 519 DOSAGE FORMS DAILY; 519 MG/DAY
     Dates: start: 20221221, end: 20221221
  6. IFOSFAMIDE [Suspect]
     Active Substance: IFOSFAMIDE
     Indication: Burkitt^s lymphoma
     Dosage: 110 MILLIGRAM DAILY; 110 MG/DAY
     Dates: start: 20221222, end: 20221226

REACTIONS (5)
  - Klebsiella infection [Recovered/Resolved]
  - Stomatitis [Recovering/Resolving]
  - Clostridium difficile infection [Recovered/Resolved]
  - Neutropenia [Recovering/Resolving]
  - Anaemia [Recovering/Resolving]

NARRATIVE: CASE EVENT DATE: 20221228
